FAERS Safety Report 15897854 (Version 1)
Quarter: 2019Q1

REPORT INFORMATION
  Report Type: Spontaneous
  Country: US (occurrence: US)
  Receive Date: 20190201
  Receipt Date: 20190201
  Transmission Date: 20190417
  Serious: No
  Sender: FDA-Public Use
  Company Number: US-CELGENEUS-USA-20190108032

PATIENT
  Age: 65 Year
  Sex: Male

DRUGS (2)
  1. OTEZLA [Suspect]
     Active Substance: APREMILAST
     Dosage: 60 MILLIGRAM
     Route: 048
     Dates: start: 20180413
  2. OTEZLA [Suspect]
     Active Substance: APREMILAST
     Indication: PSORIASIS
     Route: 048
     Dates: start: 201405

REACTIONS (2)
  - Alopecia [Unknown]
  - Hair growth abnormal [Unknown]

NARRATIVE: CASE EVENT DATE: 201812
